FAERS Safety Report 5980288-6 (Version None)
Quarter: 2008Q4

REPORT INFORMATION
  Report Type: 
  Country: None (occurrence: None)
  Receive Date: 20081205
  Receipt Date: 20081128
  Transmission Date: 20090506
  Serious: Yes (Hospitalization)
  Sender: FDA-Public Use
  Company Number: PHHY2008ES29887

PATIENT
  Age: 72 Year
  Sex: Male

DRUGS (3)
  1. DIOVAN HCT [Suspect]
     Indication: HYPERTENSION
     Dosage: 160/25 MG PER DAY
     Route: 048
     Dates: start: 20080501, end: 20081024
  2. ELIGARD [Suspect]
     Indication: PROSTATE CANCER RECURRENT
     Dosage: 45 MG ONCE DAILY
     Dates: start: 20080731, end: 20080731
  3. FLUTAMIDA ^MERCK^ [Concomitant]
     Indication: PROSTATE CANCER
     Dosage: 750 MG
     Dates: start: 20080716, end: 20080809

REACTIONS (2)
  - HEPATITIS [None]
  - HYPERBILIRUBINAEMIA [None]
